FAERS Safety Report 4800190-2 (Version None)
Quarter: 2005Q4

REPORT INFORMATION
  Report Type: 
  Country: None (occurrence: None)
  Receive Date: 20051013
  Receipt Date: 20051013
  Transmission Date: 20060501
  Serious: No
  Sender: FDA-Public Use
  Company Number: None

PATIENT
  Age: 29 Year
  Sex: Female
  Weight: 52.1637 kg

DRUGS (3)
  1. INTERFERON B/B - BETASERON [Suspect]
     Indication: MULTIPLE SCLEROSIS
     Dosage: ONCE EVERY OTHER DAY SC
     Route: 058
  2. IMMUNOGLOBULIN [Concomitant]
  3. STEROIDS [Concomitant]

REACTIONS (1)
  - HEPATITIS [None]
